FAERS Safety Report 5386236-4 (Version None)
Quarter: 2007Q3

REPORT INFORMATION
  Report Type: 
  Country: None (occurrence: None)
  Receive Date: 20070710
  Receipt Date: 20070710
  Transmission Date: 20080115
  Serious: Yes (Hospitalization, Other)
  Sender: FDA-Public Use
  Company Number: None

PATIENT
  Age: 80 Year
  Sex: Female
  Weight: 87.9978 kg

DRUGS (2)
  1. PLAVIX [Suspect]
     Indication: ANTIPLATELET THERAPY
     Dosage: 75 MILLIGRAMS ONCE DAILY PO
     Route: 048
     Dates: start: 20070409, end: 20070706
  2. PLAVIX [Suspect]
     Indication: STENT PLACEMENT
     Dosage: 75 MILLIGRAMS ONCE DAILY PO
     Route: 048
     Dates: start: 20070409, end: 20070706

REACTIONS (3)
  - GASTRIC HAEMORRHAGE [None]
  - MELAENA [None]
  - UPPER GASTROINTESTINAL HAEMORRHAGE [None]
